FAERS Safety Report 21469622 (Version 1)
Quarter: 2022Q4

REPORT INFORMATION
  Report Type: Spontaneous
  Country: US (occurrence: US)
  Receive Date: 20221018
  Receipt Date: 20221018
  Transmission Date: 20230113
  Serious: No
  Sender: FDA-Public Use
  Company Number: US-ADAMAS PHARMA, LLC-2022ADA00594

PATIENT
  Age: 69 Year
  Sex: Male

DRUGS (9)
  1. GOCOVRI [Suspect]
     Active Substance: AMANTADINE
     Indication: Dyskinesia
     Dosage: 137 MG, 1X/DAY AT BEDTIME
     Route: 048
     Dates: start: 20220216, end: 20220222
  2. GOCOVRI [Suspect]
     Active Substance: AMANTADINE
     Dosage: 274 MG, 1X/DAY AT BEDTIME
     Route: 048
     Dates: start: 20220223, end: 2022
  3. D2000 ULTRA STRENGTH [Concomitant]
  4. INBRIJA [Concomitant]
     Active Substance: LEVODOPA
  5. NAPROXEN [Concomitant]
     Active Substance: NAPROXEN
  6. RASAGILINE [Concomitant]
     Active Substance: RASAGILINE
  7. ROPINIROLE [Concomitant]
     Active Substance: ROPINIROLE
  8. RYTARY [Concomitant]
     Active Substance: CARBIDOPA\LEVODOPA
  9. VITAMIN D [Concomitant]
     Active Substance: VITAMIN D NOS

REACTIONS (1)
  - Drug ineffective [Recovered/Resolved]

NARRATIVE: CASE EVENT DATE: 20220216
